FAERS Safety Report 4631072-7 (Version None)
Quarter: 2005Q2

REPORT INFORMATION
  Report Type: 
  Country: None (occurrence: None)
  Receive Date: 20050406
  Receipt Date: 20050406
  Transmission Date: 20051028
  Serious: Yes (Other)
  Sender: FDA-Public Use
  Company Number: None

PATIENT
  Sex: Female

DRUGS (4)
  1. PHENYTOIN [Suspect]
     Indication: CONVULSION
     Dosage: PO TWO BID
     Route: 048
  2. DEPAKOTE [Concomitant]
  3. SERZONE [Concomitant]
  4. DETROL [Concomitant]

REACTIONS (1)
  - CONVULSION [None]
